FAERS Safety Report 4918519-3 (Version None)
Quarter: 2006Q1

REPORT INFORMATION
  Report Type: 
  Country: None (occurrence: None)
  Receive Date: 20060221
  Receipt Date: 20060221
  Transmission Date: 20060701
  Serious: Yes (Life-Threatening, Hospitalization, Other)
  Sender: FDA-Public Use
  Company Number: None

PATIENT
  Sex: Male
  Weight: 75.7507 kg

DRUGS (1)
  1. BENICAR [Suspect]
     Indication: HYPERTENSION
     Dosage: 20MG ONCE  A DAY
     Dates: start: 20050627, end: 20051024

REACTIONS (15)
  - ADVERSE DRUG REACTION [None]
  - ANAEMIA [None]
  - ANOREXIA [None]
  - BLOOD PRESSURE DECREASED [None]
  - BLOOD PRESSURE IMMEASURABLE [None]
  - BLOOD TRIGLYCERIDES INCREASED [None]
  - CHOLELITHIASIS [None]
  - CIRCULATORY COLLAPSE [None]
  - EXERCISE TOLERANCE DECREASED [None]
  - FATIGUE [None]
  - HAEMORRHAGE URINARY TRACT [None]
  - LOSS OF CONSCIOUSNESS [None]
  - POLLAKIURIA [None]
  - PROSTATIC HAEMORRHAGE [None]
  - PROSTATIC SPECIFIC ANTIGEN INCREASED [None]
